FAERS Safety Report 18899168 (Version 1)
Quarter: 2021Q1

REPORT INFORMATION
  Report Type: Spontaneous
  Country: DE (occurrence: DE)
  Receive Date: 20210216
  Receipt Date: 20210216
  Transmission Date: 20210420
  Serious: Yes (Other)
  Sender: FDA-Public Use
  Company Number: NVSC2021DE030788

PATIENT
  Age: 32 Year
  Sex: Female

DRUGS (7)
  1. CYCLOSPORINE. [Suspect]
     Active Substance: CYCLOSPORINE
     Indication: TRANSPLANT
     Dosage: 80 MG, BID (80?0?80) (TARGET LEVEL 100?130 NG/ML)
     Route: 065
  2. VALGANCICLOVIR. [Concomitant]
     Active Substance: VALGANCICLOVIR
     Indication: CYTOMEGALOVIRUS INFECTION
     Dosage: UNK
     Route: 065
  3. AZATHIOPRINE. [Suspect]
     Active Substance: AZATHIOPRINE
     Indication: IMMUNOSUPPRESSANT DRUG THERAPY
  4. PREDNISOLONE. [Suspect]
     Active Substance: PREDNISOLONE
     Indication: TRANSPLANT
     Dosage: 5 MG, QD (1?0?0)
     Route: 065
  5. AZATHIOPRINE. [Suspect]
     Active Substance: AZATHIOPRINE
     Indication: TRANSPLANT
     Dosage: 75 MG, QD (1?0?0)
     Route: 065
  6. PREDNISOLONE. [Suspect]
     Active Substance: PREDNISOLONE
     Indication: IMMUNOSUPPRESSANT DRUG THERAPY
  7. CYCLOSPORINE. [Suspect]
     Active Substance: CYCLOSPORINE
     Indication: IMMUNOSUPPRESSANT DRUG THERAPY

REACTIONS (2)
  - Transplant rejection [Recovered/Resolved]
  - Product use in unapproved indication [Unknown]
